FAERS Safety Report 23447620 (Version 3)
Quarter: 2024Q1

REPORT INFORMATION
  Report Type: Spontaneous
  Country: US (occurrence: US)
  Receive Date: 20240126
  Receipt Date: 20240314
  Transmission Date: 20240410
  Serious: Yes (Other)
  Sender: FDA-Public Use
  Company Number: US-BAUSCH-BL-2024-000783

PATIENT
  Sex: Female

DRUGS (2)
  1. DIAZEPAM [Suspect]
     Active Substance: DIAZEPAM
     Indication: Pelvic pain
     Dosage: ON THIS MEDICATION FOR ABOUT A YEAR
     Route: 054
     Dates: start: 2023
  2. DIAZEPAM [Suspect]
     Active Substance: DIAZEPAM
     Indication: Product use in unapproved indication

REACTIONS (3)
  - Device issue [Unknown]
  - Product preparation error [Unknown]
  - Product use in unapproved indication [Unknown]

NARRATIVE: CASE EVENT DATE: 20230101
